FAERS Safety Report 8775784 (Version 2)
Quarter: 2012Q4

REPORT INFORMATION
  Report Type: Report from Study
  Country: CH (occurrence: CH)
  Receive Date: 20120906
  Receipt Date: 20120919
  Transmission Date: 20130627
  Serious: Yes (Other)
  Sender: FDA-Public Use
  Company Number: CH-PFIZER INC-2012218970

PATIENT

DRUGS (2)
  1. AMIODARONE HCL [Suspect]
     Dosage: Unk
  2. ATORVASTATIN CALCIUM [Interacting]
     Dosage: Unk

REACTIONS (2)
  - Drug interaction [Unknown]
  - Rhabdomyolysis [Unknown]
